FAERS Safety Report 16994711 (Version 2)
Quarter: 2019Q4

REPORT INFORMATION
  Report Type: Spontaneous
  Country: DE (occurrence: DE)
  Receive Date: 20191105
  Receipt Date: 20191218
  Transmission Date: 20200122
  Serious: Yes (Death, Hospitalization, Other)
  Sender: FDA-Public Use
  Company Number: DE-ROCHE-2451311

PATIENT
  Age: 69 Year
  Sex: Female

DRUGS (6)
  1. MYCOPHENOLATE MOFETIL. [Suspect]
     Active Substance: MYCOPHENOLATE MOFETIL
     Dosage: RESTARTED
     Route: 048
  2. TACROLIMUS. [Suspect]
     Active Substance: TACROLIMUS
     Indication: PROPHYLAXIS AGAINST TRANSPLANT REJECTION
     Route: 048
  3. MYCOPHENOLATE MOFETIL. [Suspect]
     Active Substance: MYCOPHENOLATE MOFETIL
     Indication: PROPHYLAXIS AGAINST TRANSPLANT REJECTION
     Route: 048
  4. RITUXIMAB. [Suspect]
     Active Substance: RITUXIMAB
     Indication: ENCEPHALITIS AUTOIMMUNE
     Dosage: (2 X 1,000 MG WITHIN 14 DAYS).
     Route: 042
     Dates: start: 201512
  5. RITUXIMAB. [Suspect]
     Active Substance: RITUXIMAB
     Route: 042
     Dates: start: 201606
  6. TACROLIMUS. [Suspect]
     Active Substance: TACROLIMUS
     Dosage: RESTARTED
     Route: 048

REACTIONS (6)
  - Encephalitis autoimmune [Fatal]
  - Central nervous system infection [Unknown]
  - Sepsis [Fatal]
  - Epstein-Barr virus infection [Unknown]
  - Intentional product use issue [Fatal]
  - Off label use [Fatal]
